FAERS Safety Report 10404349 (Version 1)
Quarter: 2014Q1

REPORT INFORMATION
  Report Type: Spontaneous
  Country: US (occurrence: None)
  Receive Date: 20140228
  Receipt Date: 20140228
  Transmission Date: 20141002
  Serious: No
  Sender: FDA-Public Use
  Company Number: 225246 LEO

PATIENT
  Sex: Female

DRUGS (1)
  1. PICATO [Suspect]
     Indication: ACTINIC KERATOSIS
     Route: 061
     Dates: start: 20140105, end: 20140107

REACTIONS (9)
  - Application site scab [None]
  - Eye swelling [None]
  - Application site vesicles [None]
  - Application site dryness [None]
  - Application site exfoliation [None]
  - Application site pustules [None]
  - Drug ineffective [None]
  - Incorrect drug administration duration [None]
  - Inappropriate schedule of drug administration [None]
